FAERS Safety Report 11258127 (Version 1)
Quarter: 2015Q3

REPORT INFORMATION
  Report Type: Spontaneous
  Country: US (occurrence: US)
  Receive Date: 20150710
  Receipt Date: 20150710
  Transmission Date: 20151125
  Serious: Yes (Other)
  Sender: FDA-Public Use
  Company Number: US-CIPLA LTD.-2015US05551

PATIENT

DRUGS (2)
  1. RIGOSERTIB [Suspect]
     Active Substance: RIGOSERTIB
     Indication: PANCREATIC CARCINOMA METASTATIC
     Dosage: 1800 MG/M2 VIA 2-HR CIV INFUSIONS ON DAYS 1, 4, 8, 11, 15, AND 18 OF A 4-WEEK CYCLE
  2. GEMCITABINE [Suspect]
     Active Substance: GEMCITABINE\GEMCITABINE HYDROCHLORIDE
     Indication: PANCREATIC CARCINOMA RECURRENT
     Dosage: 1000 MG/M2 WEEKLY FOR 3 WEEKS OF A 4-WEEK CYCLE

REACTIONS (2)
  - Malaise [None]
  - Adverse event [Unknown]
